FAERS Safety Report 6785659-6 (Version None)
Quarter: 2010Q2

REPORT INFORMATION
  Report Type: 
  Country: None (occurrence: None)
  Receive Date: 20100623
  Receipt Date: 20100614
  Transmission Date: 20101027
  Serious: Yes (Hospitalization)
  Sender: FDA-Public Use
  Company Number: DK-JNJFOC-20100604249

PATIENT
  Sex: Female
  Weight: 74 kg

DRUGS (1)
  1. CILEST [Suspect]
     Indication: CONTRACEPTION
     Dosage: STRENGTH- 250+35 MICROGRAM
     Route: 048

REACTIONS (1)
  - OVARIAN CYST [None]
